FAERS Safety Report 23029539 (Version 5)
Quarter: 2025Q3

REPORT INFORMATION
  Report Type: Spontaneous
  Country: US (occurrence: US)
  Receive Date: 20231004
  Receipt Date: 20250911
  Transmission Date: 20251021
  Serious: Yes (Hospitalization, Other)
  Sender: SANOFI AVENTIS
  Company Number: US-SA-SAC20230929000349

PATIENT
  Age: 50 Year
  Sex: Female

DRUGS (3)
  1. KEVZARA [Suspect]
     Active Substance: SARILUMAB
     Indication: Rheumatoid arthritis
     Dosage: 200 MG, QOW
     Route: 058
     Dates: start: 202104
  2. KEVZARA [Suspect]
     Active Substance: SARILUMAB
     Dosage: 200 MG, QOW
     Route: 058
     Dates: start: 202503
  3. RASUVO [Concomitant]
     Active Substance: METHOTREXATE SODIUM

REACTIONS (5)
  - Syncope [Unknown]
  - Blood pressure decreased [Unknown]
  - Foot operation [Unknown]
  - Tooth extraction [Unknown]
  - Herpes zoster [Unknown]
